FAERS Safety Report 8842336 (Version 1)
Quarter: 2012Q4

REPORT INFORMATION
  Report Type: Spontaneous
  Country: US (occurrence: None)
  Receive Date: 20121015
  Receipt Date: 20121015
  Transmission Date: 20130627
  Serious: Yes (Other)
  Sender: FDA-Public Use
  Company Number: None

PATIENT
  Age: 42 Year
  Sex: Female
  Weight: 49.9 kg

DRUGS (3)
  1. CYMBALTA [Suspect]
     Indication: ANXIETY
     Route: 048
     Dates: start: 20100101, end: 20121001
  2. CYMBALTA [Suspect]
     Indication: DEPRESSION
     Route: 048
     Dates: start: 20100101, end: 20121001
  3. CYMBALTA [Suspect]
     Indication: FIBROMYALGIA
     Route: 048
     Dates: start: 20100101, end: 20121001

REACTIONS (4)
  - Headache [None]
  - Irritability [None]
  - Drug dependence [None]
  - No therapeutic response [None]
